FAERS Safety Report 13578045 (Version 1)
Quarter: 2017Q2

REPORT INFORMATION
  Report Type: Report from Study
  Country: US (occurrence: US)
  Receive Date: 20170524
  Receipt Date: 20170524
  Transmission Date: 20170830
  Serious: Yes (Hospitalization)
  Sender: FDA-Public Use
  Company Number: US-ACTELION-A-NJ2017-154230

PATIENT
  Age: 64 Year
  Sex: Female

DRUGS (12)
  1. KLOR-CON [Concomitant]
     Active Substance: POTASSIUM CHLORIDE
     Dosage: 8 MEQ, QD
  2. COMBIVENT [Concomitant]
     Active Substance: ALBUTEROL SULFATE\IPRATROPIUM BROMIDE
     Dosage: 1-2 PUFFS QID
  3. IPRATROPIUM [Concomitant]
     Active Substance: IPRATROPIUM
     Dosage: UNK, PRN
  4. OXYCODONE [Concomitant]
     Active Substance: OXYCODONE
     Dosage: UNK, PRN
  5. FUROSEMIDE. [Concomitant]
     Active Substance: FUROSEMIDE
     Dosage: 20 MG, QD
  6. MEGESTROL [Concomitant]
     Active Substance: MEGESTROL
     Dosage: 40 MG, QD
  7. FLUTICASONE. [Concomitant]
     Active Substance: FLUTICASONE
  8. SILDENAFIL. [Concomitant]
     Active Substance: SILDENAFIL
     Dosage: 20 MG, TID
  9. TRACLEER [Suspect]
     Active Substance: BOSENTAN
     Indication: PULMONARY ARTERIAL HYPERTENSION
     Dosage: 125 MG, BID
     Route: 048
     Dates: start: 201412
  10. GABAPENTIN. [Concomitant]
     Active Substance: GABAPENTIN
     Dosage: 300 MG QAM AND 600MG QHS
  11. VITAMIN D [Concomitant]
     Active Substance: CHOLECALCIFEROL
     Dosage: 50000 U, Q1WEEK
  12. ALBUTEROL. [Concomitant]
     Active Substance: ALBUTEROL
     Dosage: UNK, PRN

REACTIONS (5)
  - Dyspnoea [Recovering/Resolving]
  - Chest pain [Unknown]
  - Atrial flutter [Recovering/Resolving]
  - Chronic obstructive pulmonary disease [Recovering/Resolving]
  - Pneumonia [Unknown]

NARRATIVE: CASE EVENT DATE: 20170506
